FAERS Safety Report 4663384-5 (Version None)
Quarter: 2005Q2

REPORT INFORMATION
  Report Type: 
  Country: None (occurrence: None)
  Receive Date: 20050502
  Receipt Date: 20050215
  Transmission Date: 20051028
  Serious: No
  Sender: FDA-Public Use
  Company Number: 200511317US

PATIENT
  Sex: Female

DRUGS (4)
  1. KETEK [Suspect]
     Indication: SINUSITIS
     Dates: start: 20050207, end: 20050212
  2. LORATADINE (CLARITIN) [Concomitant]
  3. DECONGESTANT [Concomitant]
  4. ETHINYLESTRADIOL, DROSPIRENONE (YASMIN) [Concomitant]

REACTIONS (4)
  - DIZZINESS [None]
  - DRUG INEFFECTIVE [None]
  - HYPERHIDROSIS [None]
  - NAUSEA [None]
